FAERS Safety Report 6189948-8 (Version None)
Quarter: 2009Q2

REPORT INFORMATION
  Report Type: 
  Country: None (occurrence: None)
  Receive Date: 20090514
  Receipt Date: 20090504
  Transmission Date: 20091009
  Serious: Yes (Other)
  Sender: FDA-Public Use
  Company Number: PHBS2006BR00745

PATIENT
  Sex: Female
  Weight: 74 kg

DRUGS (12)
  1. FORASEQ [Suspect]
     Indication: BRONCHITIS
     Dosage: UNK, BID
     Dates: start: 20041001
  2. FORASEQ [Suspect]
     Indication: EMPHYSEMA
  3. BEROTEC [Concomitant]
     Indication: BRONCHITIS
     Dosage: UNK, BID
  4. DIAZEPAN [Concomitant]
     Indication: INSOMNIA
     Dosage: UNK, QD
     Route: 048
  5. PAMIRAN [Concomitant]
     Dosage: UNK, Q2MO
     Route: 048
  6. PREDNISONE [Concomitant]
     Dosage: UNK, Q2MO
     Route: 048
  7. PREDNISONE [Concomitant]
     Dosage: UNK
     Dates: start: 20090413, end: 20090420
  8. TAMIRAM [Concomitant]
     Indication: LUNG INFECTION
     Dosage: 1 DF, QD
     Route: 048
  9. TAMIRAM [Concomitant]
     Dosage: 1 DF, QD
     Route: 048
     Dates: start: 20090413, end: 20090420
  10. TAMIRAM [Concomitant]
     Dosage: UNK
  11. PREDSIM [Concomitant]
     Indication: OEDEMA
     Dosage: 1 DF, QD
     Route: 048
  12. AMITRIPTLINE HYDROCHLORIDE TAB [Concomitant]
     Indication: PAIN
     Dosage: 1 DF, QD
     Route: 048
     Dates: start: 20081101

REACTIONS (10)
  - FATIGUE [None]
  - LOWER EXTREMITY MASS [None]
  - LYMPHADENOPATHY [None]
  - MUSCULOSKELETAL PAIN [None]
  - MYALGIA [None]
  - NEURALGIA [None]
  - OEDEMA PERIPHERAL [None]
  - PAIN [None]
  - PAIN IN EXTREMITY [None]
  - THROMBOSIS [None]
